FAERS Safety Report 7631734-3 (Version None)
Quarter: 2011Q3

REPORT INFORMATION
  Report Type: 
  Country: None (occurrence: None)
  Receive Date: 20110725
  Receipt Date: 20110328
  Transmission Date: 20111222
  Serious: Yes (Other)
  Sender: FDA-Public Use
  Company Number: US-BRISTOL-MYERS SQUIBB COMPANY-15565716

PATIENT
  Age: 51 Year
  Sex: Female
  Weight: 109 kg

DRUGS (2)
  1. ASPARAGUS [Concomitant]
  2. WARFARIN SODIUM [Suspect]
     Indication: THROMBOSIS
     Dosage: 3MG EVERY DAY FOR THE LAST 3 MONTHS.
     Dates: start: 20100901

REACTIONS (1)
  - INTERNATIONAL NORMALISED RATIO DECREASED [None]
